FAERS Safety Report 25460359 (Version 1)
Quarter: 2025Q2

REPORT INFORMATION
  Report Type: Spontaneous
  Country: US (occurrence: US)
  Receive Date: 20250620
  Receipt Date: 20250620
  Transmission Date: 20250716
  Serious: No
  Sender: SANOFI AVENTIS
  Company Number: US-SA-2025SA174061

PATIENT
  Age: 41 Year
  Sex: Female
  Weight: 90.91 kg

DRUGS (8)
  1. DUPIXENT [Suspect]
     Active Substance: DUPILUMAB
     Indication: Dermatitis atopic
     Dates: start: 20250615, end: 20250615
  2. NURTEC ODT [Concomitant]
     Active Substance: RIMEGEPANT SULFATE
  3. OPZELURA [Concomitant]
     Active Substance: RUXOLITINIB PHOSPHATE
  4. IRON [Concomitant]
     Active Substance: IRON
  5. MAGNESIUM [Concomitant]
     Active Substance: MAGNESIUM
  6. DULOXETINE HYDROCHLORIDE [Concomitant]
     Active Substance: DULOXETINE HYDROCHLORIDE
  7. PAMELOR [Concomitant]
     Active Substance: NORTRIPTYLINE HYDROCHLORIDE
  8. NUTRAFOL [Concomitant]

REACTIONS (2)
  - Injection site pain [Recovered/Resolved]
  - Incorrect dose administered [Unknown]

NARRATIVE: CASE EVENT DATE: 20250615
